FAERS Safety Report 9454861 (Version 1)
Quarter: 2013Q3

REPORT INFORMATION
  Report Type: Report from Study
  Country: US (occurrence: US)
  Receive Date: 20130813
  Receipt Date: 20130813
  Transmission Date: 20140515
  Serious: Yes (Death, Other)
  Sender: FDA-Public Use
  Company Number: US-ROCHE-1260501

PATIENT
  Age: 54 Year
  Sex: Female

DRUGS (8)
  1. AVASTIN [Suspect]
     Indication: RECTAL CANCER
     Route: 042
     Dates: end: 20130129
  2. AVASTIN [Suspect]
     Indication: NEUROENDOCRINE CARCINOMA
  3. XELODA [Suspect]
     Indication: PRODUCT USED FOR UNKNOWN INDICATION
     Route: 065
     Dates: end: 20130129
  4. DECADRON [Concomitant]
     Route: 042
  5. PALONOSETRON [Concomitant]
     Route: 042
  6. RANITIDINE [Concomitant]
     Route: 042
  7. PACLITAXEL [Concomitant]
     Route: 042
  8. CARBOPLATIN [Concomitant]
     Route: 042

REACTIONS (5)
  - Death [Fatal]
  - Convulsion [Unknown]
  - Anaphylactic reaction [Unknown]
  - Pain [Unknown]
  - Nausea [Unknown]
